FAERS Safety Report 8445826-2 (Version None)
Quarter: 2012Q2

REPORT INFORMATION
  Report Type: 
  Country: None (occurrence: None)
  Receive Date: 20120618
  Receipt Date: 20120611
  Transmission Date: 20120825
  Serious: Yes (Other)
  Sender: FDA-Public Use
  Company Number: PHHY2012CA033506

PATIENT
  Sex: Female
  Weight: 63.039 kg

DRUGS (1)
  1. EXTAVIA [Suspect]
     Indication: RELAPSING-REMITTING MULTIPLE SCLEROSIS
     Dosage: 8 MIU, QOD
     Route: 058
     Dates: start: 20120402

REACTIONS (4)
  - INJECTION SITE ERYTHEMA [None]
  - PSORIASIS [None]
  - ERYTHEMA [None]
  - VITILIGO [None]
